FAERS Safety Report 14572035 (Version 2)
Quarter: 2018Q1

REPORT INFORMATION
  Report Type: Spontaneous
  Country: AU (occurrence: AU)
  Receive Date: 20180226
  Receipt Date: 20180316
  Transmission Date: 20180509
  Serious: Yes (Death, Hospitalization)
  Sender: FDA-Public Use
  Company Number: PHHY2018AU028223

PATIENT
  Age: 66 Year
  Sex: Female
  Weight: 78.9 kg

DRUGS (5)
  1. PACLITAXEL. [Suspect]
     Active Substance: PACLITAXEL
     Indication: BREAST CANCER METASTATIC
  2. PACLITAXEL. [Suspect]
     Active Substance: PACLITAXEL
     Indication: BONE MARROW FAILURE
     Dosage: 72.5 MG, QW
     Route: 042
     Dates: start: 20180119
  3. PACLITAXEL. [Suspect]
     Active Substance: PACLITAXEL
     Indication: THROMBOCYTOPENIA
  4. LETROZOLE. [Suspect]
     Active Substance: LETROZOLE
     Indication: BREAST CANCER METASTATIC
     Route: 065
  5. DENOSUMAB [Concomitant]
     Active Substance: DENOSUMAB
     Indication: BONE DISORDER
     Dosage: 12 MG, Q4W
     Route: 058

REACTIONS (4)
  - Malignant neoplasm progression [Fatal]
  - Breast cancer metastatic [Fatal]
  - Toxicity to various agents [Unknown]
  - Bone marrow failure [Fatal]

NARRATIVE: CASE EVENT DATE: 201712
